FAERS Safety Report 9198015 (Version 1)
Quarter: 2013Q1

REPORT INFORMATION
  Report Type: Other
  Country: IT (occurrence: IT)
  Receive Date: 20130328
  Receipt Date: 20130328
  Transmission Date: 20140127
  Serious: Yes (Hospitalization)
  Sender: FDA-Public Use
  Company Number: IT-WATSON-2013-05159

PATIENT
  Age: 80 Year
  Sex: Female

DRUGS (3)
  1. MIRTAZAPINE (UNKNOWN) [Suspect]
     Indication: PRODUCT USED FOR UNKNOWN INDICATION
     Dosage: UNK
     Route: 048
     Dates: start: 20130312, end: 20130312
  2. XANAX [Suspect]
     Indication: PRODUCT USED FOR UNKNOWN INDICATION
     Dosage: 1 MG, UNK
     Route: 048
     Dates: start: 20130312, end: 20130312
  3. PROMAZINE [Concomitant]
     Indication: PSYCHOMOTOR HYPERACTIVITY
     Dosage: 4G/100 ML
     Route: 048

REACTIONS (1)
  - Sopor [Recovering/Resolving]
